FAERS Safety Report 8079838-8 (Version None)
Quarter: 2012Q1

REPORT INFORMATION
  Report Type: 
  Country: None (occurrence: None)
  Receive Date: 20120128
  Receipt Date: 20110831
  Transmission Date: 20120608
  Serious: No
  Sender: FDA-Public Use
  Company Number: US-ABBOTT-11P-163-0850632-00

PATIENT
  Sex: Female

DRUGS (9)
  1. METHOTREXATE [Concomitant]
     Indication: PRODUCT USED FOR UNKNOWN INDICATION
  2. HUMIRA [Suspect]
     Indication: CROHN'S DISEASE
  3. HUMIRA [Suspect]
     Indication: PSORIASIS
     Dates: start: 20110101
  4. HUMIRA [Suspect]
     Indication: PSORIATIC ARTHROPATHY
  5. LEUCOVORIN CALCIUM [Concomitant]
     Indication: PRODUCT USED FOR UNKNOWN INDICATION
  6. NEXIUM [Concomitant]
     Indication: PRODUCT USED FOR UNKNOWN INDICATION
  7. OXYCONTIN [Concomitant]
     Indication: PRODUCT USED FOR UNKNOWN INDICATION
  8. TOPAMAX [Concomitant]
     Indication: PRODUCT USED FOR UNKNOWN INDICATION
  9. M.V.I. [Concomitant]
     Indication: PRODUCT USED FOR UNKNOWN INDICATION

REACTIONS (1)
  - UPPER RESPIRATORY TRACT INFECTION BACTERIAL [None]
